FAERS Safety Report 20030944 (Version 1)
Quarter: 2021Q4

REPORT INFORMATION
  Report Type: Spontaneous
  Country: US (occurrence: US)
  Receive Date: 20211103
  Receipt Date: 20211103
  Transmission Date: 20220303
  Serious: Yes (Hospitalization, Other)
  Sender: FDA-Public Use
  Company Number: US-MEITHEAL-2021MPLIT00066

PATIENT
  Age: 32 Year
  Sex: Male
  Weight: 88 kg

DRUGS (4)
  1. DEXMEDETOMIDINE [Suspect]
     Active Substance: DEXMEDETOMIDINE
     Indication: Sedation
     Dosage: INITIATED AT .2 MCG/KG/HR AND UP-TITRATED TO .8 MCG/KG/HR
  2. PROPOFOL [Concomitant]
     Active Substance: PROPOFOL
     Indication: Sedation
  3. FENTANYL [Concomitant]
     Active Substance: FENTANYL
     Indication: Sedation
  4. VASOPRESSIN [Concomitant]
     Active Substance: VASOPRESSIN
     Dosage: 0.02 UNITS/MIN

REACTIONS (1)
  - Diabetes insipidus [Recovered/Resolved]
